FAERS Safety Report 11764947 (Version 2)
Quarter: 2015Q4

REPORT INFORMATION
  Report Type: Spontaneous
  Country: DE (occurrence: DE)
  Receive Date: 20151121
  Receipt Date: 20151204
  Transmission Date: 20160304
  Serious: Yes (Other)
  Sender: FDA-Public Use
  Company Number: DE-AUROBINDO-AUR-APL-2015-10408

PATIENT
  Age: 45 Year
  Sex: Male

DRUGS (2)
  1. PREGABALIN 25 MG [Suspect]
     Active Substance: PREGABALIN
     Indication: POST HERPETIC NEURALGIA
     Dosage: 25 MG, EVERY WEEK
     Route: 065
  2. PREGABALIN 25 MG [Suspect]
     Active Substance: PREGABALIN
     Dosage: 600 MG, DAILY
     Route: 065

REACTIONS (2)
  - Hypertriglyceridaemia [Recovered/Resolved]
  - Dizziness [Recovered/Resolved]
